FAERS Safety Report 14208457 (Version 4)
Quarter: 2018Q4

REPORT INFORMATION
  Report Type: Spontaneous
  Country: JP (occurrence: JP)
  Receive Date: 20171121
  Receipt Date: 20181210
  Transmission Date: 20190204
  Serious: Yes (Death)
  Sender: FDA-Public Use
  Company Number: JP-ACTELION-A-CH2017-153616

PATIENT
  Age: 61 Year
  Sex: Female
  Weight: 48 kg

DRUGS (23)
  1. TRACLEER [Concomitant]
     Active Substance: BOSENTAN
     Indication: PULMONARY ARTERIAL HYPERTENSION
     Dosage: 125 MG, QD
     Route: 048
     Dates: start: 20141220, end: 20170504
  2. LANSOPRAZOLE. [Concomitant]
     Active Substance: LANSOPRAZOLE
     Dosage: 15 MG, QD
     Route: 048
     Dates: start: 20160323, end: 20171024
  3. XARELTO [Suspect]
     Active Substance: RIVAROXABAN
     Indication: ARRHYTHMIA
     Dosage: 10 MG, QD
     Route: 048
     Dates: start: 20160622, end: 20171024
  4. NAUZELIN [Concomitant]
     Active Substance: DOMPERIDONE
     Indication: NAUSEA
     Dosage: 30 MG, QD
     Route: 048
     Dates: start: 20170408, end: 20171024
  5. ZOLPIDEM TARTATE [Concomitant]
     Active Substance: ZOLPIDEM TARTRATE
     Indication: SLEEP DISORDER
     Dosage: 5 MG, QD
     Route: 048
     Dates: start: 20170412, end: 20171024
  6. LOXONIN [Concomitant]
     Active Substance: LOXOPROFEN SODIUM
     Indication: MYALGIA
     Dosage: 1 DF, QD
     Dates: start: 20170722, end: 20170804
  7. UPTRAVI [Suspect]
     Active Substance: SELEXIPAG
     Dosage: 1.0 MG, BID
     Route: 048
     Dates: start: 20170509, end: 20170530
  8. FUROSEMIDE. [Concomitant]
     Active Substance: FUROSEMIDE
     Dosage: 20 MG, QD
     Route: 048
     Dates: start: 20150317, end: 20171024
  9. WELL BI [Concomitant]
     Dosage: 1.25 MG, QD
     Route: 048
     Dates: start: 20170920, end: 20171019
  10. SAMSCA [Concomitant]
     Active Substance: TOLVAPTAN
     Dosage: 7.5 MG, QD
     Route: 048
     Dates: start: 20170713, end: 20171024
  11. ASPARA POTASSIUM [Concomitant]
     Active Substance: POTASSIUM ASPARTATE
     Dosage: 1800 MG, QD
     Route: 048
     Dates: start: 20170714, end: 20171024
  12. EUCREAS [Concomitant]
     Active Substance: METFORMIN HYDROCHLORIDE\VILDAGLIPTIN
     Indication: TYPE 2 DIABETES MELLITUS
     Dosage: 2 DF, QD
     Route: 048
     Dates: start: 20160810, end: 20171018
  13. UPTRAVI [Suspect]
     Active Substance: SELEXIPAG
     Indication: PULMONARY ARTERIAL HYPERTENSION
     Dosage: 0.2 MG, BID
     Route: 048
     Dates: start: 20170404, end: 20170410
  14. UPTRAVI [Suspect]
     Active Substance: SELEXIPAG
     Dosage: 0.4 MG, BID
     Route: 048
     Dates: start: 20170411, end: 20170417
  15. OPSUMIT [Concomitant]
     Active Substance: MACITENTAN
     Indication: PULMONARY ARTERIAL HYPERTENSION
     Dosage: 10 MG, QD
     Route: 048
     Dates: start: 20170505, end: 20171024
  16. FERROUS CITRATE NA [Concomitant]
     Active Substance: SODIUM FERROUS CITRATE
     Indication: ANAEMIA
     Dosage: 50 MG, QD
     Route: 048
     Dates: start: 20170731, end: 20171024
  17. LANIRAPID [Concomitant]
     Active Substance: METILDIGOXIN
     Dosage: 0.1 MG, QD
     Route: 048
     Dates: start: 20160622, end: 20171017
  18. LAC-B [Concomitant]
     Active Substance: BIFIDOBACTERIUM SPP.
     Indication: DIARRHOEA
     Dosage: 3 G, QD
     Dates: start: 20171019, end: 20171024
  19. UPTRAVI [Suspect]
     Active Substance: SELEXIPAG
     Dosage: 0.8 MG, QD
     Route: 048
     Dates: start: 20170425, end: 20170508
  20. UPTRAVI [Suspect]
     Active Substance: SELEXIPAG
     Dosage: 0.6 MG, BID
     Route: 048
     Dates: start: 20170418, end: 20170424
  21. UPTRAVI [Suspect]
     Active Substance: SELEXIPAG
     Dosage: 1.2 MG, BID
     Route: 048
     Dates: start: 20170531, end: 20171024
  22. TRACLEER [Concomitant]
     Active Substance: BOSENTAN
     Indication: PULMONARY ARTERIAL HYPERTENSION
     Dosage: 125 MG, QD
     Route: 048
     Dates: start: 20141220, end: 20170504
  23. ADCIRCA [Concomitant]
     Active Substance: TADALAFIL
     Indication: PULMONARY ARTERIAL HYPERTENSION
     Dosage: 40 MG, QD
     Route: 048
     Dates: start: 20160713, end: 20171024

REACTIONS (8)
  - Myalgia [Recovered/Resolved]
  - Nausea [Recovered/Resolved]
  - Diarrhoea [Unknown]
  - Arthralgia [Recovered/Resolved]
  - Pneumonia [Fatal]
  - Headache [Recovered/Resolved]
  - Epistaxis [Recovered/Resolved]
  - Muscular weakness [Recovered/Resolved]

NARRATIVE: CASE EVENT DATE: 20170405
